FAERS Safety Report 12072638 (Version 1)
Quarter: 2016Q1

REPORT INFORMATION
  Report Type: Spontaneous
  Country: US (occurrence: US)
  Receive Date: 20160212
  Receipt Date: 20160212
  Transmission Date: 20160526
  Serious: No
  Sender: FDA-Public Use
  Company Number: US-BIOGEN-2016BI00183302

PATIENT
  Sex: Female

DRUGS (1)
  1. AVONEX [Suspect]
     Active Substance: INTERFERON BETA-1A
     Indication: MULTIPLE SCLEROSIS
     Route: 065
     Dates: start: 20070122

REACTIONS (5)
  - Dizziness [Unknown]
  - Pharyngitis [Unknown]
  - Ear infection [Unknown]
  - Nasal disorder [Unknown]
  - Influenza [Not Recovered/Not Resolved]
